FAERS Safety Report 6306561-X (Version None)
Quarter: 2009Q3

REPORT INFORMATION
  Report Type: 
  Country: None (occurrence: None)
  Receive Date: 20090812
  Receipt Date: 20090804
  Transmission Date: 20100115
  Serious: Yes (Hospitalization)
  Sender: FDA-Public Use
  Company Number: A0766619A

PATIENT
  Age: 56 Year
  Sex: Male

DRUGS (7)
  1. AVANDIA [Suspect]
     Dosage: 4MG TWICE PER DAY
     Route: 048
     Dates: start: 20000518, end: 20070501
  2. CELEBREX [Concomitant]
     Dates: start: 20000522
  3. COZAAR [Concomitant]
  4. HYDROCODONE BITARTRATE + ACETAMINOPHEN [Concomitant]
  5. GLUCOTROL XL [Concomitant]
  6. STARLIX [Concomitant]
     Dates: start: 20020805
  7. AMARYL [Concomitant]
     Dates: end: 20070131

REACTIONS (9)
  - ABDOMINAL PAIN UPPER [None]
  - ARTERIOSCLEROSIS [None]
  - CHEST PAIN [None]
  - CORONARY ARTERY DISEASE [None]
  - DEMYELINATING POLYNEUROPATHY [None]
  - EYE DISORDER [None]
  - FATIGUE [None]
  - HYPERTENSION [None]
  - OEDEMA [None]
